FAERS Safety Report 10841374 (Version 1)
Quarter: 2015Q1

REPORT INFORMATION
  Report Type: Spontaneous
  Country: IT (occurrence: IT)
  Receive Date: 20150220
  Receipt Date: 20150220
  Transmission Date: 20150721
  Serious: Yes (Other)
  Sender: FDA-Public Use
  Company Number: IT-009507513-1502ITA007837

PATIENT
  Age: 80 Year
  Sex: Male
  Weight: 70 kg

DRUGS (1)
  1. FOSAMAX [Suspect]
     Active Substance: ALENDRONATE SODIUM
     Dosage: 70 MG, QD
     Route: 048
     Dates: start: 20140713, end: 20140716

REACTIONS (2)
  - Asthenia [Unknown]
  - Confusional state [None]

NARRATIVE: CASE EVENT DATE: 20140713
